FAERS Safety Report 25960949 (Version 2)
Quarter: 2025Q4

REPORT INFORMATION
  Report Type: Report from Study
  Country: CA (occurrence: CA)
  Receive Date: 20251027
  Receipt Date: 20251105
  Transmission Date: 20260117
  Serious: Yes (Other)
  Sender: CELLTRION
  Company Number: CA-CELLTRION INC.-2025CA034943

PATIENT

DRUGS (8)
  1. INFLIXIMAB-DYYB [Suspect]
     Active Substance: INFLIXIMAB-DYYB
     Indication: Crohn^s disease
     Dosage: LOADING - 300 MG - WEEK 0, 2, AND 6
     Route: 042
     Dates: start: 20250517
  2. INFLIXIMAB-DYYB [Suspect]
     Active Substance: INFLIXIMAB-DYYB
     Dosage: MAINTENANCE - 300 MG - IV (INTRAVENOUS) EVERY 8 WEEKS
     Route: 042
     Dates: start: 20250612
  3. INFLIXIMAB-DYYB [Suspect]
     Active Substance: INFLIXIMAB-DYYB
     Dosage: 300 MG  EVERY 8 WEEKS
     Route: 042
     Dates: start: 20250807
  4. INFLIXIMAB-DYYB [Suspect]
     Active Substance: INFLIXIMAB-DYYB
     Dosage: 300 MG  EVERY 6 WEEKS
     Route: 042
  5. INFLIXIMAB-DYYB [Suspect]
     Active Substance: INFLIXIMAB-DYYB
     Dosage: FREQUENCY FROM EVERY 8  WEEKS TO EVERY 6 WEEKS AFTER 08 OCT  2025
     Route: 042
  6. INFLIXIMAB-DYYB [Suspect]
     Active Substance: INFLIXIMAB-DYYB
     Dosage: LOADING - 300 MG - WEEK 0, 2, AND 6  FOLLOWED BY MAINTENANCE DOSE
     Route: 042
     Dates: start: 20250517
  7. INFLIXIMAB-DYYB [Suspect]
     Active Substance: INFLIXIMAB-DYYB
     Dosage: MAINTENANCE - 300 MG - IV  (INTRAVENOUS) EVERY 8 WEEKS
     Route: 042
     Dates: start: 20250517
  8. INFLIXIMAB-DYYB [Suspect]
     Active Substance: INFLIXIMAB-DYYB
     Dosage: UNK
     Dates: start: 20251008

REACTIONS (6)
  - Drug level decreased [Unknown]
  - Acne [Unknown]
  - Off label use [Unknown]
  - Intentional dose omission [Unknown]
  - Intentional product use issue [Unknown]
  - Inappropriate schedule of product administration [Unknown]

NARRATIVE: CASE EVENT DATE: 20250517
